FAERS Safety Report 25963914 (Version 2)
Quarter: 2025Q4

REPORT INFORMATION
  Report Type: Report from Study
  Country: US (occurrence: None)
  Receive Date: 20251027
  Receipt Date: 20251129
  Transmission Date: 20260119
  Serious: Yes (Other)
  Sender: UCB
  Company Number: US-UCBSA-2025021442

PATIENT
  Age: 46 Year

DRUGS (4)
  1. BIMEKIZUMAB [Suspect]
     Active Substance: BIMEKIZUMAB
     Indication: Psoriatic arthropathy
     Dosage: 160 MILLIGRAM, EV 4 WEEKS
  2. BIMEKIZUMAB [Suspect]
     Active Substance: BIMEKIZUMAB
     Indication: Psoriasis
     Dosage: 320 MILLIGRAM, EV 4 WEEKS
  3. BIMEKIZUMAB [Suspect]
     Active Substance: BIMEKIZUMAB
     Dosage: 320 MILLIGRAM, EV 4 WEEKS
  4. BIMEKIZUMAB [Suspect]
     Active Substance: BIMEKIZUMAB
     Dosage: 160 MILLIGRAM, EV 4 WEEKS

REACTIONS (10)
  - Ankle operation [Recovering/Resolving]
  - Foot operation [Recovering/Resolving]
  - Psoriatic arthropathy [Unknown]
  - Arthralgia [Unknown]
  - Psoriasis [Not Recovered/Not Resolved]
  - Injection site swelling [Recovered/Resolved]
  - Drug ineffective [Unknown]
  - Intentional dose omission [Unknown]
  - Therapeutic product effect incomplete [Unknown]
  - Off label use [Unknown]
